FAERS Safety Report 5757658-4 (Version None)
Quarter: 2008Q2

REPORT INFORMATION
  Report Type: 
  Country: None (occurrence: None)
  Receive Date: 20080603
  Receipt Date: 20080530
  Transmission Date: 20081010
  Serious: Yes (Other)
  Sender: FDA-Public Use
  Company Number: CA-MERCK-0805CAN00135

PATIENT
  Age: 46 Year
  Sex: Male
  Weight: 95 kg

DRUGS (16)
  1. ISENTRESS [Suspect]
     Indication: HIV INFECTION
     Route: 048
     Dates: start: 20070719, end: 20080101
  2. VIREAD [Suspect]
     Indication: HIV INFECTION
     Route: 048
     Dates: start: 20070719, end: 20080101
  3. FUZEON [Suspect]
     Indication: HIV INFECTION
     Route: 058
     Dates: start: 20070719, end: 20080101
  4. INTELENCE [Suspect]
     Indication: HIV INFECTION
     Route: 048
     Dates: start: 20070719, end: 20080101
  5. LAMIVUDINE [Concomitant]
     Route: 048
     Dates: start: 20040101, end: 20070718
  6. LAMIVUDINE [Suspect]
     Indication: HIV INFECTION
     Route: 048
     Dates: start: 20070719, end: 20080101
  7. SULFAMETHOXAZOLE AND TRIMETHOPRIM [Concomitant]
     Route: 048
     Dates: start: 20040101
  8. ACYCLOVIR [Concomitant]
     Route: 048
     Dates: start: 20040101
  9. FOLIC ACID [Concomitant]
     Route: 065
     Dates: start: 20040101
  10. ZOPICLONE [Concomitant]
     Route: 065
  11. TEMAZEPAM [Concomitant]
     Route: 065
  12. [THERAPY UNSPECIFIED] [Concomitant]
     Route: 065
     Dates: start: 20040101
  13. HYDROXYZINE HYDROCHLORIDE [Concomitant]
     Route: 065
  14. VITAMINS (UNSPECIFIED) [Concomitant]
     Route: 065
  15. VITAMIN D (UNSPECIFIED) [Concomitant]
     Route: 065
  16. VITAMIN E [Concomitant]
     Route: 065

REACTIONS (1)
  - HEPATIC ENZYME INCREASED [None]
